FAERS Safety Report 9296123 (Version 1)
Quarter: 2013Q2

REPORT INFORMATION
  Report Type: Spontaneous
  Country: FR (occurrence: FR)
  Receive Date: 20130517
  Receipt Date: 20130517
  Transmission Date: 20140414
  Serious: Yes (Life-Threatening, Hospitalization)
  Sender: FDA-Public Use
  Company Number: FR-ROXANE LABORATORIES, INC.-2013-RO-00773RO

PATIENT
  Age: 87 Year
  Sex: Female

DRUGS (1)
  1. DIGOXIN [Suspect]

REACTIONS (5)
  - Thrombocytopenia [Recovered/Resolved]
  - Cardioactive drug level increased [Unknown]
  - Cardiac failure [Unknown]
  - Systemic inflammatory response syndrome [Unknown]
  - Toxicity to various agents [Unknown]
